FAERS Safety Report 8574350-1 (Version None)
Quarter: 2012Q3

REPORT INFORMATION
  Report Type: 
  Country: None (occurrence: None)
  Receive Date: 20120806
  Receipt Date: 20120725
  Transmission Date: 20120928
  Serious: Yes (Other)
  Sender: FDA-Public Use
  Company Number: CHPA2012BR016654

PATIENT
  Sex: Female
  Weight: 72 kg

DRUGS (4)
  1. CAFFEINE CITRATE [Suspect]
     Indication: MIGRAINE
     Dosage: 1-2 DF, PRN, FOR 15 YEARS
     Route: 048
  2. ACETAMINOPHEN, ASPIRIN AND CAFFEINE [Suspect]
     Indication: INFLUENZA
     Dosage: 1 DF, PRN, FOR 30 YEARS
     Route: 048
  3. RIVOTRIL [Concomitant]
     Indication: SEDATION
     Dosage: 2 MG, QD
  4. CEFALIV [Concomitant]
     Indication: MIGRAINE
     Dosage: 1 DF, ONCE/SINGLE
     Route: 048

REACTIONS (7)
  - OFF LABEL USE [None]
  - SCOLIOSIS [None]
  - HYPERTENSION [None]
  - SPINAL DISORDER [None]
  - AGITATION [None]
  - DRUG INEFFECTIVE [None]
  - OSTEOARTHRITIS [None]
